FAERS Safety Report 22018226 (Version 2)
Quarter: 2023Q1

REPORT INFORMATION
  Report Type: Spontaneous
  Country: DE (occurrence: DE)
  Receive Date: 20230221
  Receipt Date: 20230227
  Transmission Date: 20230417
  Serious: Yes (Other)
  Sender: FDA-Public Use
  Company Number: DE-GILEAD-2023-0617172

PATIENT
  Sex: Male

DRUGS (1)
  1. BULEVIRTIDE [Suspect]
     Active Substance: BULEVIRTIDE
     Indication: Hepatitis D
     Dosage: UNK
     Route: 065

REACTIONS (2)
  - Hepatitis D [Unknown]
  - Intentional dose omission [Recovered/Resolved]
